FAERS Safety Report 14609030 (Version 2)
Quarter: 2018Q3

REPORT INFORMATION
  Report Type: Spontaneous
  Country: RU (occurrence: RU)
  Receive Date: 20180307
  Receipt Date: 20180721
  Transmission Date: 20181010
  Serious: Yes (Other)
  Sender: FDA-Public Use
  Company Number: RU-CONCORDIA PHARMACEUTICALS INC.-E2B_00010489

PATIENT
  Age: 23 Year
  Sex: Female

DRUGS (11)
  1. METHYLPREDNISOLONE. [Suspect]
     Active Substance: METHYLPREDNISOLONE
     Indication: HERPES GESTATIONIS
     Dosage: DAILY
     Route: 042
     Dates: start: 2016
  2. PREDNISOLONE. [Suspect]
     Active Substance: PREDNISOLONE
     Dosage: APPROXIMATELY 45 DAYS
     Dates: start: 201610, end: 201701
  3. PREDNISOLONE. [Suspect]
     Active Substance: PREDNISOLONE
  4. AZATHIOPRINE. [Suspect]
     Active Substance: AZATHIOPRINE
  5. DEXAMETHASONE. [Suspect]
     Active Substance: DEXAMETHASONE
     Route: 042
     Dates: start: 201710, end: 201711
  6. DAPSON [Concomitant]
     Active Substance: DAPSONE
     Indication: ERYTHEMA MULTIFORME
  7. PREDNISOLONE. [Suspect]
     Active Substance: PREDNISOLONE
  8. DEXAMETHASONE. [Suspect]
     Active Substance: DEXAMETHASONE
     Indication: HERPES GESTATIONIS
     Dates: start: 2016
  9. PREDNISOLONE. [Suspect]
     Active Substance: PREDNISOLONE
     Indication: HERPES GESTATIONIS
     Dates: start: 201701
  10. PREDNISOLONE. [Suspect]
     Active Substance: PREDNISOLONE
     Dates: start: 201701
  11. DAPSON [Concomitant]
     Active Substance: DAPSONE

REACTIONS (5)
  - Myopathy [Recovering/Resolving]
  - Cushing^s syndrome [Recovering/Resolving]
  - Osteoporosis [Recovering/Resolving]
  - Maternal exposure during pregnancy [Unknown]
  - Spinal fracture [Recovering/Resolving]

NARRATIVE: CASE EVENT DATE: 2017
